FAERS Safety Report 15105595 (Version 1)
Quarter: 2018Q3

REPORT INFORMATION
  Report Type: Spontaneous
  Country: US (occurrence: US)
  Receive Date: 20180704
  Receipt Date: 20180704
  Transmission Date: 20181010
  Serious: No
  Sender: FDA-Public Use
  Company Number: US-TEVA-2018-US-917240

PATIENT
  Age: 79 Year
  Sex: Male

DRUGS (1)
  1. METOPROLOL SUCCINATE ER [Suspect]
     Active Substance: METOPROLOL SUCCINATE
     Indication: HYPERTENSION
     Route: 065
     Dates: start: 201801

REACTIONS (5)
  - Dyskinesia [Unknown]
  - Diarrhoea [Unknown]
  - Headache [Unknown]
  - Joint swelling [Unknown]
  - Peripheral swelling [Unknown]
